FAERS Safety Report 12629362 (Version 1)
Quarter: 2016Q3

REPORT INFORMATION
  Report Type: Spontaneous
  Country: US (occurrence: US)
  Receive Date: 20160808
  Receipt Date: 20160808
  Transmission Date: 20161109
  Serious: Yes (Other)
  Sender: FDA-Public Use
  Company Number: US-SA-2016SA140927

PATIENT
  Sex: Male

DRUGS (1)
  1. GOLD BOND ULTIMATE LOTION/CREAM (ALOE BARBADENSIS LEAF JUICE) [Suspect]
     Active Substance: ALOE VERA LEAF
     Route: 065

REACTIONS (5)
  - Haemorrhage [Unknown]
  - Scrotal ulcer [None]
  - Dry skin [Unknown]
  - Chemical injury [Unknown]
  - Erythema [Unknown]
